FAERS Safety Report 4646657-1 (Version None)
Quarter: 2005Q2

REPORT INFORMATION
  Report Type: 
  Country: None (occurrence: None)
  Receive Date: 20050425
  Receipt Date: 20050413
  Transmission Date: 20051028
  Serious: Yes (Hospitalization)
  Sender: FDA-Public Use
  Company Number: 05P-056-0295428-00

PATIENT
  Age: 66 Year
  Sex: Male

DRUGS (4)
  1. TRICOR [Suspect]
     Indication: DYSLIPIDAEMIA
     Dosage: 1 DOSAGE FORMS, 1 IN 1 D, PER ORAL
     Route: 048
  2. CANDESARTAN CILEXETIL [Suspect]
     Indication: HYPERTENSION
     Dosage: 16 MG, 1 IN 1 D, PER ORAL
     Route: 048
  3. ALLOPURINOL [Suspect]
     Indication: HYPERURICAEMIA
     Dosage: 200 MG, 1 IN 1 D, PER ORAL
     Route: 048
  4. FLUINDIONE [Suspect]
     Indication: PORTAL VEIN THROMBOSIS
     Dosage: 20 MG, 1 IN 1 D, PER ORAL
     Route: 048
     Dates: start: 20050105, end: 20050207

REACTIONS (7)
  - ALANINE AMINOTRANSFERASE INCREASED [None]
  - ASPARTATE AMINOTRANSFERASE INCREASED [None]
  - BLOOD ALKALINE PHOSPHATASE INCREASED [None]
  - CHEILITIS [None]
  - CHOLESTASIS [None]
  - DRUG RASH WITH EOSINOPHILIA AND SYSTEMIC SYMPTOMS [None]
  - GAMMA-GLUTAMYLTRANSFERASE INCREASED [None]
